FAERS Safety Report 6454737-3 (Version None)
Quarter: 2009Q4

REPORT INFORMATION
  Report Type: 
  Country: None (occurrence: None)
  Receive Date: 20091124
  Receipt Date: 20091117
  Transmission Date: 20100525
  Serious: Yes (Hospitalization)
  Sender: FDA-Public Use
  Company Number: IT-WATSON-2009-09902

PATIENT
  Age: 42 Year
  Sex: Female

DRUGS (1)
  1. FERRLECIT [Suspect]
     Indication: THALASSAEMIA
     Dosage: 62.5 MG, QOD
     Route: 041
     Dates: start: 20090914, end: 20090923

REACTIONS (4)
  - DIZZINESS [None]
  - LARYNGEAL DISORDER [None]
  - PRURITUS GENERALISED [None]
  - THROAT TIGHTNESS [None]
